FAERS Safety Report 5163554-6 (Version None)
Quarter: 2006Q4

REPORT INFORMATION
  Report Type: 
  Country: None (occurrence: None)
  Receive Date: 20061128
  Receipt Date: 20061128
  Transmission Date: 20070319
  Serious: Yes (Hospitalization)
  Sender: FDA-Public Use
  Company Number: None

PATIENT
  Age: 69 Year
  Sex: Male

DRUGS (4)
  1. PACLITAXEL [Suspect]
     Dosage: TOTAL DOSE = 435 MG
     Dates: start: 20060925, end: 20061101
  2. CARBOPLATIN [Suspect]
     Dosage: TOTAL DOSE=1290 MG
     Dates: start: 20060925, end: 20061101
  3. CETUXIMAB [Suspect]
     Dosage: 400 MG/M2 WEEK 1, 250 MG/M2 WEEKS 2-8 TOTAL DOSE = 2871 MG
     Dates: start: 20060925, end: 20061101
  4. RADIATION [Suspect]
     Dosage: FOR A TOTAL OF 50.4 GY/28 FRACTIONS
     Dates: start: 20060925, end: 20061101

REACTIONS (2)
  - ANAEMIA [None]
  - GASTROINTESTINAL HAEMORRHAGE [None]
